FAERS Safety Report 14240111 (Version 1)
Quarter: 2017Q4

REPORT INFORMATION
  Report Type: Spontaneous
  Country: US (occurrence: US)
  Receive Date: 20171129
  Receipt Date: 20171129
  Transmission Date: 20180321
  Serious: Yes (Other)
  Sender: FDA-Public Use
  Company Number: None

PATIENT
  Age: 55 Year
  Sex: Female
  Weight: 91.35 kg

DRUGS (4)
  1. VAS [Concomitant]
  2. VASCEPA [Concomitant]
     Active Substance: ICOSAPENT ETHYL
  3. ANASTROZOLE. [Concomitant]
     Active Substance: ANASTROZOLE
  4. PAZEO [Suspect]
     Active Substance: OLOPATADINE HYDROCHLORIDE
     Indication: PRURITUS
     Dosage: STRENGTH 0.7% PER ML MILITITRE(S)?          QUANTITY:1 DROP(S);?
     Route: 047
     Dates: start: 20171110, end: 20171110

REACTIONS (3)
  - Eye irritation [None]
  - Lacrimation increased [None]
  - Rhinorrhoea [None]

NARRATIVE: CASE EVENT DATE: 20171129
